FAERS Safety Report 9122556 (Version 2)
Quarter: 2013Q1

REPORT INFORMATION
  Report Type: Spontaneous
  Country: US (occurrence: None)
  Receive Date: 20130131
  Receipt Date: 20130220
  Transmission Date: 20140127
  Serious: Yes (Hospitalization)
  Sender: FDA-Public Use
  Company Number: JPI-P-029230

PATIENT
  Age: 74 Year
  Sex: Female

DRUGS (1)
  1. XYREM (500 MILLIGRAM/MILLILITERS, SOLUTION) (SODIUM OXYBATE) [Suspect]
     Indication: PRODUCT USED FOR UNKNOWN INDICATION
     Dosage: (2.25 GM, 2 IN 1 D)
     Route: 048
     Dates: start: 20030128

REACTIONS (1)
  - Intestinal obstruction [None]
